FAERS Safety Report 8826784 (Version 2)
Quarter: 2012Q4

REPORT INFORMATION
  Report Type: Report from Study
  Country: DE (occurrence: DE)
  Receive Date: 20121005
  Receipt Date: 20121009
  Transmission Date: 20130627
  Serious: Yes (Other)
  Sender: FDA-Public Use
  Company Number: DE-VIIV HEALTHCARE LIMITED-B0835064A

PATIENT
  Sex: Female

DRUGS (2)
  1. DOLUTEGRAVIR [Suspect]
     Indication: HIV INFECTION
     Dosage: 50MG per day
     Route: 048
     Dates: start: 20110317, end: 20120824
  2. ABACAVIR SULFATE AND LAMIVUDINE [Suspect]
     Indication: HIV INFECTION
     Route: 048
     Dates: start: 20110317, end: 20120824

REACTIONS (2)
  - Abortion spontaneous [Recovered/Resolved]
  - Exposure during pregnancy [None]
